FAERS Safety Report 17233513 (Version 1)
Quarter: 2020Q1

REPORT INFORMATION
  Report Type: Spontaneous
  Country: NL (occurrence: NL)
  Receive Date: 20200104
  Receipt Date: 20200104
  Transmission Date: 20200409
  Serious: Yes (Other)
  Sender: FDA-Public Use
  Company Number: NL-AUROBINDO-AUR-APL-2020-000262

PATIENT
  Age: 79 Year
  Sex: Female
  Weight: 90 kg

DRUGS (2)
  1. SIMVASTATIN FILM-COATED TABLETS 20MG [Suspect]
     Active Substance: SIMVASTATIN
     Indication: BLOOD CHOLESTEROL INCREASED
     Dosage: UNK
     Route: 048
     Dates: start: 2017, end: 2017
  2. PYRIDOXINE [Suspect]
     Active Substance: PYRIDOXINE
     Indication: PRODUCT USED FOR UNKNOWN INDICATION
     Dosage: UNK
     Route: 065
     Dates: start: 2017

REACTIONS (2)
  - Pain in extremity [Recovered/Resolved with Sequelae]
  - Neuropathy peripheral [Unknown]

NARRATIVE: CASE EVENT DATE: 2017
